FAERS Safety Report 5602707-7 (Version None)
Quarter: 2008Q1

REPORT INFORMATION
  Report Type: 
  Country: None (occurrence: None)
  Receive Date: 20080125
  Receipt Date: 20080117
  Transmission Date: 20080703
  Serious: Yes (Other)
  Sender: FDA-Public Use
  Company Number: US-ABBOTT-06P-163-0341280-00

PATIENT
  Age: 16 Year
  Sex: Female

DRUGS (5)
  1. NORVIR [Suspect]
     Indication: HIV INFECTION
     Route: 048
     Dates: start: 20060725
  2. DIDANOSINE [Concomitant]
     Indication: HIV INFECTION
     Dates: start: 20050714
  3. EMTRICITABINE [Concomitant]
     Indication: HIV INFECTION
     Dates: start: 20050714
  4. ATAZANAVIR SULFATE [Concomitant]
     Indication: HIV INFECTION
     Dates: start: 20060725
  5. MEDROXYPROGESTERONE ACETATE [Concomitant]
     Indication: DRUG USE FOR UNKNOWN INDICATION

REACTIONS (2)
  - BLOOD BILIRUBIN INCREASED [None]
  - BLOOD BILIRUBIN UNCONJUGATED INCREASED [None]
